FAERS Safety Report 5012484-9 (Version None)
Quarter: 2006Q2

REPORT INFORMATION
  Report Type: 
  Country: None (occurrence: None)
  Receive Date: 20060410
  Receipt Date: 20060106
  Transmission Date: 20061013
  Serious: Yes (Hospitalization)
  Sender: FDA-Public Use
  Company Number: 06P-163-0321401-00

PATIENT
  Age: 24 Year
  Sex: Female

DRUGS (3)
  1. DEPAKOTE [Suspect]
     Indication: BIPOLAR DISORDER
     Dosage: PER ORAL
     Route: 048
  2. DEPAKOTE ER [Suspect]
     Indication: BIPOLAR DISORDER
     Dosage: PER ORAL
     Route: 048
  3. TRAZODONE HCL [Concomitant]

REACTIONS (2)
  - BIPOLAR DISORDER [None]
  - RASH [None]
